FAERS Safety Report 18238749 (Version 1)
Quarter: 2020Q3

REPORT INFORMATION
  Report Type: Spontaneous
  Country: HR (occurrence: HR)
  Receive Date: 20200907
  Receipt Date: 20200907
  Transmission Date: 20201103
  Serious: Yes (Other)
  Sender: FDA-Public Use
  Company Number: HR-ROCHE-2672320

PATIENT
  Age: 31 Year
  Sex: Female

DRUGS (2)
  1. PRAZINE [PROMAZINE HYDROCHLORIDE] [Suspect]
     Active Substance: PROMAZINE HYDROCHLORIDE
     Indication: PRODUCT USED FOR UNKNOWN INDICATION
     Route: 048
     Dates: start: 20200729, end: 20200729
  2. RIVOTRIL [Suspect]
     Active Substance: CLONAZEPAM
     Indication: PRODUCT USED FOR UNKNOWN INDICATION
     Route: 048
     Dates: start: 20200729, end: 20200729

REACTIONS (3)
  - Suicide attempt [Unknown]
  - Loss of consciousness [Unknown]
  - Intentional overdose [Unknown]

NARRATIVE: CASE EVENT DATE: 20200729
